FAERS Safety Report 6058059-4 (Version None)
Quarter: 2009Q1

REPORT INFORMATION
  Report Type: 
  Country: None (occurrence: None)
  Receive Date: 20090127
  Receipt Date: 20090121
  Transmission Date: 20090719
  Serious: Yes (Hospitalization)
  Sender: FDA-Public Use
  Company Number: CERZ-1000490

PATIENT
  Age: 29 Year
  Sex: Male

DRUGS (1)
  1. CEREZYME [Suspect]
     Indication: GAUCHER'S DISEASE
     Dosage: 30 U/KG, Q2W, INTRAVENOUS
     Route: 042
     Dates: end: 20080701

REACTIONS (4)
  - EXCESSIVE EXERCISE [None]
  - FALL [None]
  - FEMUR FRACTURE [None]
  - MYALGIA [None]
